FAERS Safety Report 8916708 (Version 2)
Quarter: 2013Q3

REPORT INFORMATION
  Report Type: Spontaneous
  Country: US (occurrence: US)
  Receive Date: 20121120
  Receipt Date: 20130925
  Transmission Date: 20140515
  Serious: Yes (Hospitalization, Other)
  Sender: FDA-Public Use
  Company Number: US-BAYER-2012-120035

PATIENT
  Age: 26 Year
  Sex: Female

DRUGS (4)
  1. YAZ [Suspect]
     Dosage: UNK
     Dates: start: 2005, end: 20070116
  2. YASMIN [Suspect]
     Dosage: UNK
     Dates: start: 2005, end: 20070116
  3. OCELLA [Suspect]
     Dosage: UNK
     Dates: start: 2005, end: 20070116
  4. LEXAPRO [Concomitant]
     Dosage: UNK
     Dates: start: 20070116

REACTIONS (8)
  - Gallbladder disorder [None]
  - Deep vein thrombosis [None]
  - Injury [None]
  - Pain [None]
  - Pain [None]
  - Emotional distress [None]
  - General physical health deterioration [None]
  - Anxiety [None]
